FAERS Safety Report 11380355 (Version 1)
Quarter: 2015Q3

REPORT INFORMATION
  Report Type: Spontaneous
  Country: US (occurrence: US)
  Receive Date: 20150814
  Receipt Date: 20150814
  Transmission Date: 20151125
  Serious: Yes (Other)
  Sender: FDA-Public Use
  Company Number: US-JNJFOC-20150416953

PATIENT
  Age: 78 Year
  Sex: Female
  Weight: 65.77 kg

DRUGS (4)
  1. REMICADE [Suspect]
     Active Substance: INFLIXIMAB
     Indication: PSORIASIS
     Route: 042
     Dates: start: 2014, end: 201503
  2. REMICADE [Suspect]
     Active Substance: INFLIXIMAB
     Indication: PSORIATIC ARTHROPATHY
     Route: 042
     Dates: start: 20150420
  3. REMICADE [Suspect]
     Active Substance: INFLIXIMAB
     Indication: PSORIATIC ARTHROPATHY
     Route: 042
     Dates: start: 2014, end: 201503
  4. REMICADE [Suspect]
     Active Substance: INFLIXIMAB
     Indication: PSORIASIS
     Route: 042
     Dates: start: 20150420

REACTIONS (5)
  - Pyrexia [Not Recovered/Not Resolved]
  - Pneumonia [Recovered/Resolved]
  - Nervousness [Not Recovered/Not Resolved]
  - Dyspnoea [Not Recovered/Not Resolved]
  - Psoriasis [Not Recovered/Not Resolved]

NARRATIVE: CASE EVENT DATE: 2014
